FAERS Safety Report 11278446 (Version 1)
Quarter: 2015Q3

REPORT INFORMATION
  Report Type: Spontaneous
  Country: US (occurrence: None)
  Receive Date: 20150715
  Receipt Date: 20150715
  Transmission Date: 20151125
  Serious: No
  Sender: FDA-Public Use
  Company Number: DL2015-0601

PATIENT
  Age: 21 Year
  Sex: Female

DRUGS (3)
  1. MISOPROSTOL. [Suspect]
     Active Substance: MISOPROSTOL
     Route: 002
  2. AZITHROMYCIN [Concomitant]
     Active Substance: AZITHROMYCIN ANHYDROUS
  3. MIFEPRISTONE [Suspect]
     Active Substance: MIFEPRISTONE
     Indication: ABORTION INDUCED
     Route: 048
     Dates: start: 20141009

REACTIONS (7)
  - Bacterial vaginosis [None]
  - Vaginal odour [None]
  - Vaginal discharge [None]
  - Muscle spasms [None]
  - Abortion incomplete [None]
  - Bradycardia [None]
  - Pyrexia [None]

NARRATIVE: CASE EVENT DATE: 20141012
